FAERS Safety Report 6883924-5 (Version None)
Quarter: 2010Q3

REPORT INFORMATION
  Report Type: 
  Country: None (occurrence: None)
  Receive Date: 20100729
  Receipt Date: 20100714
  Transmission Date: 20110219
  Serious: Yes (Hospitalization, Other)
  Sender: FDA-Public Use
  Company Number: IE-MEDIMMUNE-MEDI-0010584

PATIENT
  Sex: Male
  Weight: 8.5 kg

DRUGS (4)
  1. SYNAGIS [Suspect]
     Route: 030
     Dates: start: 20091023
  2. NUTRIPREM 11 [Concomitant]
  3. MULTI-VITAMIN [Concomitant]
  4. FERROUS SULFATE [Concomitant]

REACTIONS (6)
  - COUGH [None]
  - ERYTHEMA [None]
  - MENINGITIS VIRAL [None]
  - PYREXIA [None]
  - RESPIRATORY TRACT INFECTION [None]
  - WHEEZING [None]
